FAERS Safety Report 15960686 (Version 3)
Quarter: 2019Q2

REPORT INFORMATION
  Report Type: Spontaneous
  Country: JP (occurrence: JP)
  Receive Date: 20190214
  Receipt Date: 20190527
  Transmission Date: 20190711
  Serious: Yes (Other)
  Sender: FDA-Public Use
  Company Number: JP-SA-2019SA039285

PATIENT
  Age: 59 Year
  Sex: Female

DRUGS (8)
  1. GASMOTIN [Concomitant]
     Active Substance: MOSAPRIDE CITRATE
  2. XYZAL [Suspect]
     Active Substance: LEVOCETIRIZINE DIHYDROCHLORIDE
     Indication: RHINITIS
     Dosage: 5 MG, QD
     Route: 048
  3. WYPAX [Concomitant]
     Active Substance: LORAZEPAM
  4. DOGMATYL [Suspect]
     Active Substance: SULPIRIDE
     Indication: PRODUCT USED FOR UNKNOWN INDICATION
     Dosage: UNK UNK, UNK
     Route: 048
  5. KOSOSAN [Concomitant]
  6. OLMESARTAN MEDOXOMIL. [Concomitant]
     Active Substance: OLMESARTAN MEDOXOMIL
  7. ALPRAZOLAM. [Suspect]
     Active Substance: ALPRAZOLAM
     Indication: PRODUCT USED FOR UNKNOWN INDICATION
     Dosage: UNK UNK, UNK
     Route: 048
  8. MUCOSTA [Concomitant]
     Active Substance: REBAMIPIDE

REACTIONS (2)
  - Altered state of consciousness [Recovered/Resolved]
  - Language disorder [Recovered/Resolved]
